FAERS Safety Report 24887768 (Version 1)
Quarter: 2025Q1

REPORT INFORMATION
  Report Type: Spontaneous
  Country: US (occurrence: US)
  Receive Date: 20250127
  Receipt Date: 20250127
  Transmission Date: 20250409
  Serious: No
  Sender: CHIESI
  Company Number: US-CHIESI-2024CHF00358

PATIENT
  Sex: Male

DRUGS (2)
  1. ZYFLO [Suspect]
     Active Substance: ZILEUTON
     Indication: Asthma
     Route: 065
  2. ZYFLO [Suspect]
     Active Substance: ZILEUTON
     Indication: Asthma prophylaxis

REACTIONS (1)
  - Off label use [Unknown]
